FAERS Safety Report 20659045 (Version 1)
Quarter: 2022Q1

REPORT INFORMATION
  Report Type: Spontaneous
  Country: US (occurrence: US)
  Receive Date: 20220331
  Receipt Date: 20220331
  Transmission Date: 20220423
  Serious: No
  Sender: FDA-Public Use
  Company Number: US-BRISTOL-MYERS SQUIBB COMPANY-2022-012781

PATIENT
  Age: 53 Day
  Sex: Male

DRUGS (1)
  1. POMALYST [Suspect]
     Active Substance: POMALIDOMIDE
     Indication: Product used for unknown indication
     Route: 048
     Dates: start: 20220214

REACTIONS (4)
  - Dysphonia [Unknown]
  - Red blood cell count decreased [Unknown]
  - White blood cell count [Unknown]
  - Flatulence [Unknown]

NARRATIVE: CASE EVENT DATE: 20220308
